FAERS Safety Report 18643552 (Version 3)
Quarter: 2022Q1

REPORT INFORMATION
  Report Type: Spontaneous
  Country: FR (occurrence: FR)
  Receive Date: 20201221
  Receipt Date: 20220119
  Transmission Date: 20220423
  Serious: Yes (Hospitalization, Other)
  Sender: FDA-Public Use
  Company Number: FR-002147023-NVSC2020FR327049

PATIENT
  Age: 52 Year
  Sex: Female
  Weight: 61 kg

DRUGS (112)
  1. ETHINYL ESTRADIOL\LEVONORGESTREL [Suspect]
     Active Substance: ETHINYL ESTRADIOL\LEVONORGESTREL
     Dosage: UNK (1 BOX OF 3 BLISTER PACKS)
     Route: 065
     Dates: start: 19980617, end: 19990213
  2. ETHINYL ESTRADIOL\LEVONORGESTREL [Suspect]
     Active Substance: ETHINYL ESTRADIOL\LEVONORGESTREL
     Dosage: UNK
     Route: 065
  3. ESTRADIOL [Suspect]
     Active Substance: ESTRADIOL
     Dosage: UNK
     Route: 065
  4. CYPROTERONE ACETATE [Suspect]
     Active Substance: CYPROTERONE ACETATE
     Indication: Hyperandrogenism
     Dosage: 0.5 DF (50 MG), 7 DAYS PER MONTH
     Route: 065
     Dates: start: 199806, end: 1999
  5. CYPROTERONE ACETATE [Suspect]
     Active Substance: CYPROTERONE ACETATE
     Dosage: UNK (7 DAYS PER MONTH)
     Route: 065
     Dates: start: 2000, end: 2004
  6. CYPROTERONE ACETATE [Suspect]
     Active Substance: CYPROTERONE ACETATE
     Dosage: 0.5 DF, 20 DAYS PER MONTH
     Route: 065
     Dates: start: 200507, end: 201108
  7. CYPROTERONE ACETATE [Suspect]
     Active Substance: CYPROTERONE ACETATE
     Dosage: 0.5 DF, 20 DAYS PER MONTH
     Route: 065
     Dates: start: 20120828, end: 20130826
  8. CYPROTERONE ACETATE [Suspect]
     Active Substance: CYPROTERONE ACETATE
     Dosage: 0.5 DF, 20 DAYS PER MONTH
     Route: 065
     Dates: end: 201506
  9. CYPROTERONE ACETATE [Suspect]
     Active Substance: CYPROTERONE ACETATE
     Dosage: 1 DF, QD (FOR 6 FIRST DAYS OF A CYCLE + INTRAUTERINE DEVICE. 1 BOX. TO REPEAT)
     Route: 065
     Dates: start: 19990213
  10. CYPROTERONE ACETATE [Suspect]
     Active Substance: CYPROTERONE ACETATE
     Dosage: 1 DF, 1X/DAY
     Route: 065
     Dates: start: 20021030
  11. CYPROTERONE ACETATE [Suspect]
     Active Substance: CYPROTERONE ACETATE
     Dosage: 1 DF, QD FOR 7 FIRST DAYS
     Route: 065
     Dates: start: 20010822
  12. CYPROTERONE ACETATE [Suspect]
     Active Substance: CYPROTERONE ACETATE
     Dosage: .5 DOSAGE FORMS DAILY;
     Route: 065
     Dates: start: 20060808
  13. CYPROTERONE ACETATE [Suspect]
     Active Substance: CYPROTERONE ACETATE
     Dosage: 1 DF, 1X/DAY
     Route: 065
     Dates: start: 19990723
  14. CYPROTERONE ACETATE [Suspect]
     Active Substance: CYPROTERONE ACETATE
     Dosage: 0.5 DF, QD FOR 20 DAYS
     Route: 065
     Dates: start: 20070829
  15. CYPROTERONE ACETATE [Suspect]
     Active Substance: CYPROTERONE ACETATE
     Dosage: 0.5 DF, 1X/DAY
     Route: 065
     Dates: start: 20100816
  16. CYPROTERONE ACETATE [Suspect]
     Active Substance: CYPROTERONE ACETATE
     Dosage: 1 DF, QD FOR 7 FIRST DAYS OF CYCLEANE
     Dates: start: 20040107
  17. CYPROTERONE ACETATE [Suspect]
     Active Substance: CYPROTERONE ACETATE
     Dosage: 0.5 DF
     Route: 065
     Dates: start: 20060628
  18. CYPROTERONE ACETATE [Suspect]
     Active Substance: CYPROTERONE ACETATE
     Dosage: 0.5 DF, QD FOR 20 DAYS
     Dates: start: 20050713
  19. CYPROTERONE ACETATE [Suspect]
     Active Substance: CYPROTERONE ACETATE
     Dosage: 1 DF, QD FOR 7 FIRST DAYS OF CYCLEANE; 1 BOX TO REPEAT 6 TIMES
     Route: 065
     Dates: start: 20030611
  20. CYPROTERONE ACETATE [Suspect]
     Active Substance: CYPROTERONE ACETATE
     Dosage: 0.5 DF, OTHER (20 DAYS PER MONTH)
     Dates: start: 201506
  21. CYPROTERONE ACETATE [Suspect]
     Active Substance: CYPROTERONE ACETATE
     Dosage: 1 DF, QD FOR 7 FIRST DAYS OF CYCLEANE
     Dates: start: 20020227
  22. CYPROTERONE ACETATE [Suspect]
     Active Substance: CYPROTERONE ACETATE
     Dosage: 0.5 DF, 1X/DAY
     Route: 065
     Dates: start: 20090901
  23. CYPROTERONE ACETATE [Suspect]
     Active Substance: CYPROTERONE ACETATE
     Dosage: 1 DF, 1X/DAY
     Route: 065
     Dates: start: 20021030
  24. CYPROTERONE ACETATE [Suspect]
     Active Substance: CYPROTERONE ACETATE
     Dosage: 0.5 DF, 1X/DAY
     Route: 065
     Dates: start: 20010822
  25. CYPROTERONE ACETATE [Suspect]
     Active Substance: CYPROTERONE ACETATE
     Dosage: 1 DF, 1X/DAY (QD FOR 7 FIRST DAYS OF CYCLEANE)
     Route: 065
     Dates: start: 20030611
  26. CYPROTERONE ACETATE [Suspect]
     Active Substance: CYPROTERONE ACETATE
     Dosage: 0.5 DF, 20 DAYS PER MONTH
     Route: 065
     Dates: end: 201506
  27. CYPROTERONE ACETATE [Suspect]
     Active Substance: CYPROTERONE ACETATE
     Dosage: 1 DF, 1X/DAY (QD FOR 7 FIRST DAYS)
     Route: 065
     Dates: start: 20040107
  28. CYPROTERONE ACETATE [Suspect]
     Active Substance: CYPROTERONE ACETATE
     Dosage: 1 DF, 1X/DAY (QD FOR 7 FIRST DAYS OF CYCLEANE)
     Route: 065
     Dates: start: 20030611
  29. CYPROTERONE ACETATE [Suspect]
     Active Substance: CYPROTERONE ACETATE
     Dosage: 0.5 DF, 1X/DAY (QD FOR 20 DAYS)
     Route: 065
     Dates: start: 20020227
  30. CYPROTERONE ACETATE [Suspect]
     Active Substance: CYPROTERONE ACETATE
     Dosage: UNK
     Route: 065
     Dates: start: 2000, end: 2004
  31. CYPROTERONE ACETATE [Suspect]
     Active Substance: CYPROTERONE ACETATE
     Dosage: 0.5 DF, 1X/DAY
     Route: 065
     Dates: start: 20060628
  32. CYPROTERONE ACETATE [Suspect]
     Active Substance: CYPROTERONE ACETATE
     Dosage: 0.5 DF (50 MG), 7 DAYS PER MONTH
     Route: 065
     Dates: start: 199806, end: 1999
  33. CYPROTERONE ACETATE [Suspect]
     Active Substance: CYPROTERONE ACETATE
     Dosage: 0.5 DF, SEVEN DAYS PER MONTH
     Route: 065
     Dates: start: 200507, end: 201108
  34. CYPROTERONE ACETATE [Suspect]
     Active Substance: CYPROTERONE ACETATE
     Dosage: 1 DF, 1X/DAY (QD FOR 7 FIRST DAYS OF CYCLEANE)
     Route: 065
     Dates: start: 20100816
  35. CYPROTERONE ACETATE [Suspect]
     Active Substance: CYPROTERONE ACETATE
     Dosage: 1 DF, 1X/DAY (QD FOR 7 FIRST DAYS)
     Route: 065
     Dates: start: 20070829
  36. CYPROTERONE ACETATE [Suspect]
     Active Substance: CYPROTERONE ACETATE
     Dosage: UNK
     Route: 065
     Dates: start: 20020227
  37. CYPROTERONE ACETATE [Suspect]
     Active Substance: CYPROTERONE ACETATE
     Dosage: 1 DF, 1X/DAY (QD FOR 7 FIRST DAYS OF CYCLEANE)
     Route: 065
     Dates: start: 20090901
  38. CYPROTERONE ACETATE [Suspect]
     Active Substance: CYPROTERONE ACETATE
     Indication: Hyperandrogenism
     Dosage: 0.5 DF, 20 DAYS PER MONTH
     Route: 065
     Dates: start: 20120828, end: 20130826
  39. CYPROTERONE ACETATE [Suspect]
     Active Substance: CYPROTERONE ACETATE
     Dosage: 0.5 DF, 1X/DAY (QD FOR 20 DAYS)
     Route: 065
     Dates: start: 20050713
  40. CYPROTERONE ACETATE [Suspect]
     Active Substance: CYPROTERONE ACETATE
     Dosage: 1 DF, 1X/DAY
     Route: 065
     Dates: start: 19990723
  41. CYPROTERONE ACETATE [Suspect]
     Active Substance: CYPROTERONE ACETATE
     Dosage: 1 DF, 1X/DAY (FOR 6 FIRST DAYS OF A CYCLE + INTRAUTERINE DEVICE. 1 BOX. TO REPEAT)
     Route: 065
     Dates: start: 19990213
  42. DESOGESTREL\ETHINYL ESTRADIOL [Suspect]
     Active Substance: DESOGESTREL\ETHINYL ESTRADIOL
     Indication: Hyperandrogenism
     Dosage: UNK, 7 DAYS PER MONTH
     Route: 065
     Dates: start: 2000, end: 2004
  43. DESOGESTREL\ETHINYL ESTRADIOL [Suspect]
     Active Substance: DESOGESTREL\ETHINYL ESTRADIOL
     Dosage: UNK (1 BOX OF 3 BLISTER PACKS. TO REPEAT 4 TIMES)
     Dates: start: 20020227
  44. DESOGESTREL\ETHINYL ESTRADIOL [Suspect]
     Active Substance: DESOGESTREL\ETHINYL ESTRADIOL
     Dosage: UNK (U1 BOX OF 3 BLISTER PACKS. TO REPEAT 6 TIMES)
     Route: 065
     Dates: start: 20040107
  45. DESOGESTREL\ETHINYL ESTRADIOL [Suspect]
     Active Substance: DESOGESTREL\ETHINYL ESTRADIOL
     Dosage: UNK (1 BOX OF 3 BLISTER PACKS)
     Dates: start: 20021030
  46. DESOGESTREL\ETHINYL ESTRADIOL [Suspect]
     Active Substance: DESOGESTREL\ETHINYL ESTRADIOL
     Dosage: UNK (1 BOX OF 3 BLISTER PACKS, TO REPEAT 6 TIMES)
     Dates: start: 20030611
  47. DESOGESTREL\ETHINYL ESTRADIOL [Suspect]
     Active Substance: DESOGESTREL\ETHINYL ESTRADIOL
     Dosage: UNK (1 BOX OF 3 BLISTER PACKS. TO REPEAT 4 TIMES)
     Dates: start: 20010822
  48. DESOGESTREL\ETHINYL ESTRADIOL [Suspect]
     Active Substance: DESOGESTREL\ETHINYL ESTRADIOL
     Dosage: UNK (1 BOX OF 3 BLISTER PACKS. TO REPEAT 3 MONTHS)
     Dates: start: 20000711
  49. DESOGESTREL\ETHINYL ESTRADIOL [Suspect]
     Active Substance: DESOGESTREL\ETHINYL ESTRADIOL
     Dosage: UNK
     Route: 065
     Dates: start: 20000711
  50. DESOGESTREL\ETHINYL ESTRADIOL [Suspect]
     Active Substance: DESOGESTREL\ETHINYL ESTRADIOL
     Dosage: UNK
     Route: 065
     Dates: start: 20021030
  51. DESOGESTREL\ETHINYL ESTRADIOL [Suspect]
     Active Substance: DESOGESTREL\ETHINYL ESTRADIOL
     Dosage: UNK
     Route: 065
     Dates: start: 20030611
  52. DESOGESTREL\ETHINYL ESTRADIOL [Suspect]
     Active Substance: DESOGESTREL\ETHINYL ESTRADIOL
     Dosage: UNK
     Route: 065
     Dates: start: 20010822
  53. DESOGESTREL\ETHINYL ESTRADIOL [Suspect]
     Active Substance: DESOGESTREL\ETHINYL ESTRADIOL
     Dosage: UNK
     Route: 065
     Dates: start: 20020227
  54. DESOGESTREL\ETHINYL ESTRADIOL [Suspect]
     Active Substance: DESOGESTREL\ETHINYL ESTRADIOL
     Indication: Hyperandrogenism
     Dosage: UNK
     Route: 065
     Dates: start: 2000, end: 2004
  55. CYPROTERONE [Suspect]
     Active Substance: CYPROTERONE
     Indication: Hyperandrogenism
     Dosage: UNK
     Route: 065
     Dates: start: 20090615
  56. CYPROTERONE [Suspect]
     Active Substance: CYPROTERONE
     Dosage: 50 MG, UNKNOWN
     Route: 065
     Dates: start: 20110404
  57. CYPROTERONE [Suspect]
     Active Substance: CYPROTERONE
     Dosage: 50 MG
     Route: 065
  58. CYPROTERONE [Suspect]
     Active Substance: CYPROTERONE
     Dosage: 50 MG
     Route: 065
     Dates: start: 20110606
  59. CYPROTERONE [Suspect]
     Active Substance: CYPROTERONE
     Dosage: 50 MG
     Route: 065
     Dates: start: 20110606
  60. CYPROTERONE [Suspect]
     Active Substance: CYPROTERONE
     Dosage: 50 MG
     Route: 065
  61. CYPROTERONE [Suspect]
     Active Substance: CYPROTERONE
     Indication: Hyperandrogenism
     Dosage: UNK
     Route: 065
     Dates: start: 20090615
  62. ESTROGENS [Suspect]
     Active Substance: ESTROGENS
     Dosage: UNK
     Route: 065
  63. ESTRADIOL [Suspect]
     Active Substance: ESTRADIOL
     Indication: Hyperandrogenism
     Dosage: 1 MG (20 DAYS PER MONTHS)
     Route: 065
     Dates: start: 200507, end: 201108
  64. ESTRADIOL [Suspect]
     Active Substance: ESTRADIOL
     Dosage: 1 DF, 1X/DAY FOR 20 DAYS
     Route: 065
     Dates: start: 20050713
  65. ESTRADIOL [Suspect]
     Active Substance: ESTRADIOL
     Dosage: 1 DF, 1X/DAY, FOR 20 DAYS
     Route: 065
     Dates: start: 20060628
  66. ESTRADIOL [Suspect]
     Active Substance: ESTRADIOL
     Dosage: 1 DF, 1X/DAY, FOR 20 DAYS
     Route: 065
     Dates: start: 20090901
  67. ESTRADIOL [Suspect]
     Active Substance: ESTRADIOL
     Dosage: 1 DF, 1X/DAY, FOR 20 DAYS
     Route: 065
     Dates: start: 20060808
  68. ESTRADIOL [Suspect]
     Active Substance: ESTRADIOL
     Dosage: 1 DF, 1X/DAY FOR 20 DAYS
     Route: 065
     Dates: start: 20100816
  69. ESTRADIOL [Suspect]
     Active Substance: ESTRADIOL
     Dosage: 1 DF, QD FOR 20 DAYS (1 BOX OF 12. TO RESUME 6 TIMES)
     Route: 065
     Dates: start: 20070829
  70. ESTRADIOL [Suspect]
     Active Substance: ESTRADIOL
     Dosage: 1 DF, 1X/DAY (1 DF, QD FOR 20 DAYS)
     Dates: start: 20060628
  71. ESTRADIOL [Suspect]
     Active Substance: ESTRADIOL
     Dosage: 1 DF, 1X/DAY (QD FOR 20 DAYS (1 BOX OF 12. TO RESUME 6 TIMES))
     Dates: start: 20070829
  72. ESTRADIOL [Suspect]
     Active Substance: ESTRADIOL
     Dosage: 1 DF, 1X/DAY (QD FOR 20 DAYS (SUSPENDED FOR 1 WEEK AND THEN RESUMED SIMILARLY. QUANTITY SUFF)
     Dates: start: 20100816
  73. ESTRADIOL [Suspect]
     Active Substance: ESTRADIOL
     Dosage: 1 DF, 1X/DAY (QD FOR 20 DAYS)
     Dates: start: 20060808
  74. ESTRADIOL [Suspect]
     Active Substance: ESTRADIOL
     Dosage: 1 DF, 1X/DAY (QD FOR 20 DAYS)
     Dates: start: 20050713
  75. ESTRADIOL [Suspect]
     Active Substance: ESTRADIOL
     Dosage: 1 DF, 1X/DAY (QD FOR 20 DAYS)
     Dates: start: 20090901
  76. MIRENA [Suspect]
     Active Substance: LEVONORGESTREL
     Indication: Hyperandrogenism
     Dosage: UNK
     Route: 015
     Dates: start: 20040901, end: 20050913
  77. MIRENA [Suspect]
     Active Substance: LEVONORGESTREL
     Dosage: UNK
     Route: 015
     Dates: start: 20040707
  78. MIRENA [Suspect]
     Active Substance: LEVONORGESTREL
     Indication: Hyperandrogenism
     Dosage: UNK
     Route: 015
     Dates: start: 20040901, end: 20050913
  79. KETOPROFEN [Concomitant]
     Active Substance: KETOPROFEN
     Dosage: UNK
  80. KETOPROFEN [Concomitant]
     Active Substance: KETOPROFEN
     Dosage: UNK
     Route: 065
  81. DUPHASTON [Concomitant]
     Active Substance: DYDROGESTERONE
     Dosage: 2 DF, 1X/DAY (QD FOR 10 DAYS)
     Route: 065
     Dates: start: 19990505
  82. MOTILIUM [Concomitant]
     Active Substance: DOMPERIDONE
     Dosage: 1 DF, 3X/DAY
  83. MOTILIUM [Concomitant]
     Active Substance: DOMPERIDONE
     Dosage: 1 DF, 3X/DAY
     Route: 065
  84. MOTILIUM [Concomitant]
     Active Substance: DOMPERIDONE
     Dosage: 1 DF, 1X/DAY
     Route: 065
  85. MOTILIUM [Concomitant]
     Active Substance: DOMPERIDONE
     Dosage: 3 DF, 1X/DAY
     Route: 065
  86. POLYGYNAX [ACETARSOL;NEOMYCIN;NYSTATIN;POLYMYXIN B SULFATE] [Concomitant]
     Dosage: UNK
     Route: 065
  87. NEOMYCIN\NYSTATIN\POLYMYXIN B SULFATE [Concomitant]
     Active Substance: NEOMYCIN\NYSTATIN\POLYMYXIN B SULFATE
     Dosage: UNK
  88. ESTRADIOL [Concomitant]
     Active Substance: ESTRADIOL
     Dosage: 1 DF, 1X/DAY (QD FOR 10 DAYS)
     Route: 065
     Dates: start: 19990505
  89. ZOMIG [Concomitant]
     Active Substance: ZOLMITRIPTAN
     Indication: Migraine
     Dosage: 1 DF FOR MIGRAINE TO REPEAT ONE HOUR LATER IF NEEDED AND 4 TIMES PER 24 HOURS AT MAXIMUM
     Dates: start: 20010822
  90. ZOMIG [Concomitant]
     Active Substance: ZOLMITRIPTAN
     Dosage: 1 DF (FOR MIGRAINE TO REPEAT ONE HOUR LATER IF NEEDED AND 4 TIMES PER 24 HOURS AT MAXIMUM)
     Dates: start: 20030611
  91. ZOMIG [Concomitant]
     Active Substance: ZOLMITRIPTAN
     Dosage: 1 DF (TO REPEAT 1 HOUR LATER IF NEEDED)
     Dates: start: 20070829
  92. ZOMIG [Concomitant]
     Active Substance: ZOLMITRIPTAN
     Dosage: 1 DF
     Dates: start: 19990213
  93. ZOMIG [Concomitant]
     Active Substance: ZOLMITRIPTAN
     Dosage: 1 DF (TO REPEAT 1 HOUR LATER IF NEEDED)
     Dates: start: 20090901
  94. ZOMIG [Concomitant]
     Active Substance: ZOLMITRIPTAN
     Dosage: 1 DF (HOUR LATER IF NEEDED)
     Dates: start: 20060808
  95. ZOMIG [Concomitant]
     Active Substance: ZOLMITRIPTAN
     Dosage: 1 DF (TO REPEAT 1 HR LATER IF NEEDED)
     Dates: start: 20051006
  96. ZOMIG [Concomitant]
     Active Substance: ZOLMITRIPTAN
     Dosage: 1 DF (TO REPEAT ONE HOUR LATER IF NEEDED AND 4 TIMES PER 24 HOURS AT MAXIMUM)
     Dates: start: 20020227
  97. ZOMIG [Concomitant]
     Active Substance: ZOLMITRIPTAN
     Dosage: 1 DF, 1X/DAY
     Dates: start: 19990318
  98. ZOMIG [Concomitant]
     Active Substance: ZOLMITRIPTAN
     Dosage: 1 DF FOR MIGRAINE TO REPEAT ONE HOUR LATER IF NEEDED AND 4 TIMES PER 24 HOURS AT MAXIMUM
     Dates: start: 20021030
  99. ZOMIG [Concomitant]
     Active Substance: ZOLMITRIPTAN
     Dosage: 1 DF (TO REPEAT 1 HOUR LATER IF NEEDED)
     Dates: start: 20080919
  100. ZOMIG [Concomitant]
     Active Substance: ZOLMITRIPTAN
     Dosage: MAXIMUM. 1 BOX OF 12. TO REPEAT 6 TIMES
     Dates: start: 20040107
  101. ZOMIG [Concomitant]
     Active Substance: ZOLMITRIPTAN
     Dosage: 1 DF FOR MIGRAINEN TO REPEAT ONE HOUR LATER IF NEEDED AND 4 TIMES PER 24 HOURS AT MAXIMUM
     Route: 065
     Dates: start: 20010822
  102. ZOMIG [Concomitant]
     Active Substance: ZOLMITRIPTAN
     Dosage: 1 DF, AS NEEDED (HOUR LATER IF NEEDED)
     Route: 065
     Dates: start: 20060808
  103. ZOMIG [Concomitant]
     Active Substance: ZOLMITRIPTAN
     Dosage: 1 (UNIT UNKNOWN), 1X/DAY (TO REPEAT 1 HOUR LATER IF NEEDED)
     Route: 065
     Dates: start: 20090901
  104. ZOMIG [Concomitant]
     Active Substance: ZOLMITRIPTAN
     Dosage: 1 DF FOR MIGRAINE TO REPEAT ONE HOUR LATER IF NEEDED AND 4 TIMES PER 24 HOURS AT MAXIMUM
     Route: 065
     Dates: start: 20021030
  105. ZOMIG [Concomitant]
     Active Substance: ZOLMITRIPTAN
     Dosage: 1 (UNIT UNKNOWN), 1X/DAY (TO REPEAT ONE HOUR LATER IF NEEDED AND 4 TIMES PER 24 HOURS AT MAXIMUM)
     Route: 065
     Dates: start: 20020227
  106. ZOMIG [Concomitant]
     Active Substance: ZOLMITRIPTAN
     Dosage: 1 DF, 1X/DAY (TO REPEAT 1 HR LATER IF NEEDED)
     Route: 065
     Dates: start: 20051006
  107. ZOMIG [Concomitant]
     Active Substance: ZOLMITRIPTAN
     Dosage: 1 (UNIT UNKNOWN), 1X/DAY
     Route: 065
     Dates: start: 19990318
  108. ZOMIG [Concomitant]
     Active Substance: ZOLMITRIPTAN
     Dosage: 1 DF FOR MIGRAINE TO REPEAT ONE HOUR LATER IF NEEDED AND 4 TIMES PER 24 HOURS AT MAXIMUM. 1 BOX OF 1
     Route: 065
     Dates: start: 20040107
  109. ZOMIG [Concomitant]
     Active Substance: ZOLMITRIPTAN
     Dosage: 1 DF, 1X/DAY (TO REPEAT 1 HOUR LATER IF NEEDED)
     Route: 065
     Dates: start: 20080919
  110. ZOMIG [Concomitant]
     Active Substance: ZOLMITRIPTAN
     Dosage: 1 DF (FOR MIGRAINE TO REPEAT ONE HOUR LATER IF NEEDED AND 4 TIMES PER 24 HOURS AT MAXIMUM. 1 BOX OF
     Route: 065
     Dates: start: 20030611
  111. ZOMIG [Concomitant]
     Active Substance: ZOLMITRIPTAN
     Dosage: 1 DF, 1X/DAY (TO REPEAT 1 HOUR LATER IF NEEDED)
     Route: 065
     Dates: start: 20070829
  112. ZOMIG [Concomitant]
     Active Substance: ZOLMITRIPTAN
     Dosage: 1 (UNIT UNKNOWN), 1X/DAY
     Route: 065
     Dates: start: 20090213

REACTIONS (31)
  - Haemorrhage intracranial [Unknown]
  - Meningioma [Unknown]
  - Cognitive disorder [Unknown]
  - Facial paralysis [Unknown]
  - Tension headache [Unknown]
  - Headache [Unknown]
  - Tumour haemorrhage [Unknown]
  - Epilepsy [Unknown]
  - Squamous cell carcinoma [Unknown]
  - Hypothermia [Unknown]
  - Seizure [Unknown]
  - Scar [Unknown]
  - Pain of skin [Unknown]
  - Fatigue [Unknown]
  - Skin depigmentation [Unknown]
  - Post procedural oedema [Unknown]
  - Pain [Unknown]
  - Skin lesion [Unknown]
  - Haematoma [Unknown]
  - Sleep disorder [Unknown]
  - Muscle tightness [Unknown]
  - Pain in extremity [Unknown]
  - Musculoskeletal stiffness [Unknown]
  - Psychomotor retardation [Unknown]
  - Nausea [Unknown]
  - Language disorder [Unknown]
  - Migraine [Unknown]
  - Aphasia [Unknown]
  - Arthralgia [Unknown]
  - Dysarthria [Unknown]
  - Feeling abnormal [Unknown]

NARRATIVE: CASE EVENT DATE: 20140101
